FAERS Safety Report 6526419-0 (Version None)
Quarter: 2009Q4

REPORT INFORMATION
  Report Type: 
  Country: None (occurrence: None)
  Receive Date: 20091223
  Receipt Date: 20091214
  Transmission Date: 20100525
  Serious: Yes (Other)
  Sender: FDA-Public Use
  Company Number: A-US2009-28170

PATIENT
  Age: 77 Year
  Sex: Female
  Weight: 78 kg

DRUGS (5)
  1. VENTAVIS [Suspect]
     Indication: PULMONARY ARTERIAL HYPERTENSION
     Dosage: 5 UG, RESPIRATORY; 2.5 UG, RESPIRATORY
     Route: 055
     Dates: start: 20091014, end: 20091014
  2. VENTAVIS [Suspect]
     Indication: PULMONARY ARTERIAL HYPERTENSION
     Dosage: 5 UG, RESPIRATORY; 2.5 UG, RESPIRATORY
     Route: 055
     Dates: start: 20091014
  3. TRACLEER [Concomitant]
  4. CALCIUM CHANNEL BLOCKERS [Concomitant]
  5. COUMADIN [Concomitant]

REACTIONS (6)
  - BRADYCARDIA [None]
  - HYPERHIDROSIS [None]
  - HYPOTENSION [None]
  - LIVER DISORDER [None]
  - LIVER FUNCTION TEST ABNORMAL [None]
  - PALPITATIONS [None]
